FAERS Safety Report 12625023 (Version 1)
Quarter: 2016Q3

REPORT INFORMATION
  Report Type: Spontaneous
  Country: US (occurrence: None)
  Receive Date: 20160804
  Receipt Date: 20160804
  Transmission Date: 20161109
  Serious: Yes (Life-Threatening)
  Sender: FDA-Public Use
  Company Number: None

PATIENT
  Age: 53 Year
  Sex: Female
  Weight: 69.4 kg

DRUGS (1)
  1. ISOSULFAN BLUE. [Suspect]
     Active Substance: ISOSULFAN BLUE
     Indication: LYMPHATIC MAPPING
     Dates: start: 20160802

REACTIONS (5)
  - Oedema [None]
  - Piloerection [None]
  - Hypotension [None]
  - Rash [None]
  - Anaphylactic reaction [None]

NARRATIVE: CASE EVENT DATE: 20160802
